FAERS Safety Report 9054626 (Version 2)
Quarter: 2013Q1

REPORT INFORMATION
  Report Type: Spontaneous
  Country: CA (occurrence: CA)
  Receive Date: 20130208
  Receipt Date: 20130301
  Transmission Date: 20140127
  Serious: Yes (Other)
  Sender: FDA-Public Use
  Company Number: CA-ABBOTT-13P-028-1044851-00

PATIENT
  Age: 16 None
  Sex: Female

DRUGS (2)
  1. BIAXIN [Suspect]
     Indication: BRONCHITIS
     Dates: start: 200905
  2. YASMIN [Concomitant]
     Indication: PRODUCT USED FOR UNKNOWN INDICATION

REACTIONS (26)
  - Suicidal ideation [Recovered/Resolved]
  - Hallucination, visual [Recovered/Resolved]
  - Nervousness [Recovered/Resolved]
  - Anxiety [Recovered/Resolved]
  - Insomnia [Recovered/Resolved]
  - Nightmare [Recovered/Resolved]
  - Depression [Recovered/Resolved]
  - Crying [Recovered/Resolved]
  - Urticaria cholinergic [Unknown]
  - Tonsillitis [Unknown]
  - Acarodermatitis [Unknown]
  - Headache [Unknown]
  - Ear infection [Unknown]
  - Vaginal infection [Unknown]
  - Bronchitis viral [Unknown]
  - Tachycardia [Unknown]
  - Viral pharyngitis [Unknown]
  - Infectious mononucleosis [Unknown]
  - Asthenia [Unknown]
  - Urticaria [Unknown]
  - Cough [Unknown]
  - Oropharyngeal pain [Unknown]
  - Dyspnoea [Unknown]
  - Cough [Unknown]
  - Oropharyngeal discomfort [Unknown]
  - Dehydration [Unknown]
